FAERS Safety Report 7371047-0 (Version None)
Quarter: 2011Q1

REPORT INFORMATION
  Report Type: 
  Country: None (occurrence: None)
  Receive Date: 20110324
  Receipt Date: 20110317
  Transmission Date: 20110831
  Serious: Yes (Other)
  Sender: FDA-Public Use
  Company Number: JP-ABBOTT-11P-087-0713235-00

PATIENT
  Age: 79 Year
  Sex: Female

DRUGS (4)
  1. CLARITHROMYCIN [Suspect]
     Indication: MYCOBACTERIAL INFECTION
     Dates: start: 20070601
  2. ETHAMBUTOL HYDROCHLORIDE [Concomitant]
     Indication: MYCOBACTERIAL INFECTION
     Dates: start: 20070601
  3. KANAMYCIN SULFATE [Suspect]
     Indication: MYCOBACTERIAL INFECTION
     Dates: start: 20070601
  4. RIFAMPICIN [Concomitant]
     Indication: MYCOBACTERIAL INFECTION
     Dates: start: 20070601

REACTIONS (1)
  - INTERSTITIAL LUNG DISEASE [None]
